FAERS Safety Report 9251036 (Version 1)
Quarter: 2013Q2

REPORT INFORMATION
  Report Type: Report from Study
  Country: EC (occurrence: EC)
  Receive Date: 20130424
  Receipt Date: 20130424
  Transmission Date: 20140414
  Serious: Yes (Death)
  Sender: FDA-Public Use
  Company Number: EC-ROCHE-1217604

PATIENT
  Sex: Female

DRUGS (2)
  1. BONVIVA [Suspect]
     Indication: OSTEOPOROSIS
     Route: 065
  2. ASA [Concomitant]
     Indication: CARDIAC VALVE DISEASE
     Route: 065

REACTIONS (1)
  - Cardiac disorder [Fatal]
